FAERS Safety Report 11351407 (Version 1)
Quarter: 2015Q3

REPORT INFORMATION
  Report Type: Spontaneous
  Country: US (occurrence: US)
  Receive Date: 20150807
  Receipt Date: 20150807
  Transmission Date: 20151125
  Serious: No
  Sender: FDA-Public Use
  Company Number: US-JNJFOC-20150220753

PATIENT
  Age: 52 Year
  Sex: Female
  Weight: 54.43 kg

DRUGS (5)
  1. WOMENS ROGAINE UNSCENTED [Suspect]
     Active Substance: MINOXIDIL
     Route: 061
  2. NEXIUM [Concomitant]
     Active Substance: ESOMEPRAZOLE MAGNESIUM
     Indication: DYSPEPSIA
     Route: 065
  3. WOMENS ROGAINE UNSCENTED [Suspect]
     Active Substance: MINOXIDIL
     Indication: ALOPECIA
     Dosage: A LITTLE MORE THEN HALF A CAPFUL ONCE
     Route: 061
     Dates: start: 20150223, end: 20150223
  4. CLONIDINE. [Concomitant]
     Active Substance: CLONIDINE
     Indication: BLOOD PRESSURE MEASUREMENT
     Route: 065
  5. PAXEL [Concomitant]
     Active Substance: PACLITAXEL
     Indication: ANXIETY
     Route: 065

REACTIONS (7)
  - Product use issue [Unknown]
  - Headache [Not Recovered/Not Resolved]
  - Blood pressure increased [Unknown]
  - Product container issue [Unknown]
  - Wrong technique in product usage process [Unknown]
  - Dyspnoea [Unknown]
  - Chest pain [Not Recovered/Not Resolved]

NARRATIVE: CASE EVENT DATE: 20150223
